FAERS Safety Report 24185107 (Version 1)
Quarter: 2024Q3

REPORT INFORMATION
  Report Type: Spontaneous
  Country: AR (occurrence: AR)
  Receive Date: 20240807
  Receipt Date: 20240807
  Transmission Date: 20241017
  Serious: Yes (Other)
  Sender: GLAXOSMITHKLINE
  Company Number: AR-GLAXOSMITHKLINE-AR2024AMR097823

PATIENT

DRUGS (1)
  1. BENLYSTA [Suspect]
     Active Substance: BELIMUMAB
     Indication: Systemic lupus erythematosus
     Dosage: 200 MG, MO
     Route: 058
     Dates: start: 20210604

REACTIONS (13)
  - Demyelination [Unknown]
  - Blindness unilateral [Not Recovered/Not Resolved]
  - Nervous system disorder [Unknown]
  - Pain [Unknown]
  - Fatigue [Unknown]
  - General physical health deterioration [Unknown]
  - Coordination abnormal [Not Recovered/Not Resolved]
  - Motor dysfunction [Unknown]
  - Visual impairment [Unknown]
  - Condition aggravated [Unknown]
  - Mobility decreased [Not Recovered/Not Resolved]
  - Fall [Unknown]
  - Stress [Unknown]

NARRATIVE: CASE EVENT DATE: 20240201
